FAERS Safety Report 8623451-8 (Version None)
Quarter: 2012Q3

REPORT INFORMATION
  Report Type: 
  Country: None (occurrence: None)
  Receive Date: 20120824
  Receipt Date: 20120824
  Transmission Date: 20120928
  Serious: Yes (Life-Threatening)
  Sender: FDA-Public Use
  Company Number: None

PATIENT
  Age: 38 Year
  Sex: Male
  Weight: 79 kg

DRUGS (2)
  1. HALOPERIDOL [Suspect]
     Indication: RESTLESSNESS
     Dosage: IV DRIP
     Route: 041
     Dates: start: 20120806, end: 20120810
  2. HALOPERIDOL [Suspect]
     Indication: AGGRESSION
     Dosage: IV DRIP
     Route: 041
     Dates: start: 20120806, end: 20120810

REACTIONS (2)
  - CARDIAC ARREST [None]
  - TORSADE DE POINTES [None]
